FAERS Safety Report 6918670-2 (Version None)
Quarter: 2010Q3

REPORT INFORMATION
  Report Type: 
  Country: None (occurrence: None)
  Receive Date: 20100811
  Receipt Date: 20100805
  Transmission Date: 20110219
  Serious: Yes (Hospitalization)
  Sender: FDA-Public Use
  Company Number: US-B.I. PHARMACEUTICALS,INC./RIDGEFIELD-2010-BP-08908BP

PATIENT
  Sex: Female

DRUGS (14)
  1. SPIRIVA [Suspect]
     Indication: BRONCHITIS CHRONIC
     Dosage: 18 MCG
     Route: 055
     Dates: start: 20100201
  2. ADVAIR HFA [Concomitant]
     Indication: BRONCHITIS CHRONIC
  3. IPRATROPIUM BROMIDE [Concomitant]
     Indication: BRONCHITIS CHRONIC
  4. PREDNISONE [Concomitant]
     Indication: BRONCHITIS CHRONIC
  5. METHOTREXATE [Concomitant]
     Indication: SYSTEMIC LUPUS ERYTHEMATOSUS
  6. METHOTREXATE [Concomitant]
     Indication: RHEUMATOID ARTHRITIS
  7. ZETIA [Concomitant]
     Indication: BLOOD CHOLESTEROL INCREASED
  8. SIMVASTATIN [Concomitant]
     Indication: BLOOD CHOLESTEROL INCREASED
  9. REQUIP [Concomitant]
     Indication: RESTLESS LEGS SYNDROME
  10. MS CONTIN [Concomitant]
     Indication: PAIN
  11. BELLADONNA [Concomitant]
     Indication: ABDOMINAL PAIN UPPER
  12. OMEPRAZOLE [Concomitant]
     Indication: GASTROOESOPHAGEAL REFLUX DISEASE
  13. CLONAZEPAM [Concomitant]
     Indication: SLEEP DISORDER
  14. CELEBREX [Concomitant]
     Indication: MUSCULOSKELETAL STIFFNESS

REACTIONS (1)
  - PNEUMONIA [None]
